FAERS Safety Report 21389186 (Version 1)
Quarter: 2022Q3

REPORT INFORMATION
  Report Type: Spontaneous
  Country: IT (occurrence: IT)
  Receive Date: 20220929
  Receipt Date: 20220929
  Transmission Date: 20221027
  Serious: Yes (Other)
  Sender: FDA-Public Use
  Company Number: None

PATIENT
  Age: 79 Year
  Sex: Male

DRUGS (5)
  1. TICLOPIDINE [Suspect]
     Active Substance: TICLOPIDINE
     Indication: Factor V Leiden mutation
     Dosage: 500 MILLIGRAM DAILY; 250 MG X 2
  2. TICLOPIDINE [Suspect]
     Active Substance: TICLOPIDINE
     Indication: Hyperhomocysteinaemia
  3. IRBESARTAN AND HYDROCHLOROTHIAZIDE ALTER [Concomitant]
     Indication: Hypertension
     Dosage: 300 / 12.5 MG 1 TABLET EVERY OTHER DAY
  4. ROSUVASTATIN [Concomitant]
     Active Substance: ROSUVASTATIN
     Indication: Dyslipidaemia
     Dosage: 5 MILLIGRAM DAILY;
  5. IRBESARTAN [Concomitant]
     Active Substance: IRBESARTAN
     Indication: Hypertension
     Dosage: IRBESARTAN 300 MG 1 TABLET EVERY OTHER DAY

REACTIONS (1)
  - Gastrointestinal haemorrhage [Recovering/Resolving]

NARRATIVE: CASE EVENT DATE: 20220812
